FAERS Safety Report 5403802-8 (Version None)
Quarter: 2007Q3

REPORT INFORMATION
  Report Type: 
  Country: None (occurrence: None)
  Receive Date: 20070802
  Receipt Date: 20070719
  Transmission Date: 20080115
  Serious: Yes (Hospitalization)
  Sender: FDA-Public Use
  Company Number: JP-PURDUE-MAG_2007_0000563

PATIENT
  Age: 80 Year
  Sex: Female

DRUGS (7)
  1. OXYCODONE HCL [Suspect]
     Indication: CANCER PAIN
     Dosage: 10 MG, DAILY
     Route: 048
     Dates: start: 20070628, end: 20070628
  2. OXYCODONE HCL [Suspect]
     Dosage: 5 MG, DAILY
     Route: 048
     Dates: start: 20070629, end: 20070629
  3. MORPHINE HYDROCHLORIDE [Suspect]
     Indication: CANCER PAIN
     Dosage: 5 MG, PRN
     Route: 048
     Dates: start: 20070629, end: 20070629
  4. LORAZEPAM [Concomitant]
     Indication: AUTONOMIC NERVOUS SYSTEM IMBALANCE
     Dosage: 1 MG, DAILY
     Route: 048
  5. ALOSENN [Concomitant]
     Indication: CONSTIPATION
     Route: 048
  6. MARUYAMA VACCINE [Concomitant]
     Indication: OVARIAN CANCER
     Dosage: 1 DF, DAILY
     Route: 058
     Dates: start: 20010901, end: 20070629
  7. FLAVINE ADENINE DINUCLEOTIDE [Concomitant]
     Dosage: 1 ML, UNK
     Route: 065

REACTIONS (2)
  - ALTERED STATE OF CONSCIOUSNESS [None]
  - HEPATIC FUNCTION ABNORMAL [None]
